FAERS Safety Report 5503220-8 (Version None)
Quarter: 2007Q4

REPORT INFORMATION
  Report Type: 
  Country: None (occurrence: None)
  Receive Date: 20071031
  Receipt Date: 20071019
  Transmission Date: 20080405
  Serious: Yes (Other)
  Sender: FDA-Public Use
  Company Number: US-PFIZER INC-2007088851

PATIENT
  Sex: Female
  Weight: 61.363 kg

DRUGS (5)
  1. CHANTIX [Suspect]
     Indication: SMOKING CESSATION THERAPY
     Dosage: TEXT:EVERY DAY
     Dates: start: 20070901, end: 20071001
  2. SPIRIVA [Concomitant]
  3. ALBUTEROL [Concomitant]
  4. LEXAPRO [Concomitant]
  5. LISINOPRIL [Concomitant]
     Indication: BLOOD PRESSURE

REACTIONS (8)
  - DYSPHAGIA [None]
  - FACIAL PALSY [None]
  - LIP SWELLING [None]
  - NAUSEA [None]
  - PHARYNGEAL OEDEMA [None]
  - RASH MACULAR [None]
  - SWELLING FACE [None]
  - VOMITING [None]
